FAERS Safety Report 7390026-0 (Version None)
Quarter: 2011Q2

REPORT INFORMATION
  Report Type: 
  Country: None (occurrence: None)
  Receive Date: 20110401
  Receipt Date: 20110321
  Transmission Date: 20111010
  Serious: Yes (Life-Threatening)
  Sender: FDA-Public Use
  Company Number: FR-ASTRAZENECA-2011SE06068

PATIENT
  Age: 19640 Day
  Sex: Female

DRUGS (6)
  1. CELOCURINE [Suspect]
     Indication: INDUCTION OF ANAESTHESIA
     Dosage: ONCE/SINGLE ADMINISTRATION
     Route: 042
     Dates: start: 20110111, end: 20110111
  2. DIPRIVAN [Suspect]
     Dosage: ONCE/SINGLE ADMINISTRATION
     Route: 042
     Dates: start: 20110111, end: 20110111
  3. METFORMINE [Concomitant]
     Route: 048
     Dates: end: 20110109
  4. HYPNOMIDATE [Suspect]
     Indication: INDUCTION OF ANAESTHESIA
     Route: 042
     Dates: start: 20110111, end: 20110111
  5. SUFENTANYL MERCK [Suspect]
     Indication: INDUCTION OF ANAESTHESIA
     Route: 042
     Dates: start: 20110111, end: 20110111
  6. DIPRIVAN [Suspect]
     Indication: INDUCTION OF ANAESTHESIA
     Dosage: ONCE/SINGLE ADMINISTRATION
     Route: 042
     Dates: start: 20110111, end: 20110111

REACTIONS (4)
  - BRONCHOSPASM [None]
  - CIRCULATORY COLLAPSE [None]
  - RASH [None]
  - ANAPHYLACTOID SHOCK [None]
